FAERS Safety Report 7131649-3 (Version None)
Quarter: 2010Q4

REPORT INFORMATION
  Report Type: 
  Country: None (occurrence: None)
  Receive Date: 20101201
  Receipt Date: 20101119
  Transmission Date: 20110411
  Serious: Yes (Hospitalization, Other)
  Sender: FDA-Public Use
  Company Number: US-AMGEN-USASP2010006757

PATIENT

DRUGS (3)
  1. ENBREL [Suspect]
     Indication: RHEUMATOID ARTHRITIS
     Dosage: UNK
     Dates: end: 20100201
  2. METHOTREXATE SODIUM [Concomitant]
     Indication: RHEUMATOID ARTHRITIS
     Dosage: 15 MG, QWK
     Route: 058
     Dates: start: 20090101, end: 20100201
  3. METOPROLOL [Concomitant]
     Indication: HYPERTENSION

REACTIONS (4)
  - IMMUNOSUPPRESSION [None]
  - PNEUMONIA [None]
  - SENSATION OF FOREIGN BODY [None]
  - URINARY TRACT INFECTION [None]
